FAERS Safety Report 5103115-8 (Version None)
Quarter: 2006Q3

REPORT INFORMATION
  Report Type: 
  Country: None (occurrence: None)
  Receive Date: 20060908
  Receipt Date: 20060831
  Transmission Date: 20061208
  Serious: Yes (Hospitalization, Other)
  Sender: FDA-Public Use
  Company Number: 2006AL002623

PATIENT
  Age: 69 Year

DRUGS (4)
  1. FLUOXETINE [Suspect]
     Indication: DEPRESSION
     Dosage: 20 MG;X1;PO
     Route: 048
     Dates: start: 20060410, end: 20060415
  2. NOVICOL [Concomitant]
  3. SIMVASTATIN [Concomitant]
  4. XALACOM [Concomitant]

REACTIONS (4)
  - CONDITION AGGRAVATED [None]
  - GENERAL PHYSICAL HEALTH DETERIORATION [None]
  - LOSS OF CONSCIOUSNESS [None]
  - VOMITING [None]
